FAERS Safety Report 10463730 (Version 2)
Quarter: 2014Q4

REPORT INFORMATION
  Report Type: Report from Study
  Country: HU (occurrence: HU)
  Receive Date: 20140919
  Receipt Date: 20141017
  Transmission Date: 20150528
  Serious: Yes (Hospitalization)
  Sender: FDA-Public Use
  Company Number: PHHY2014HU118641

PATIENT
  Age: 72 Year
  Sex: Male

DRUGS (6)
  1. NOOTROPIL [Concomitant]
     Active Substance: PIRACETAM
     Indication: PRODUCT USED FOR UNKNOWN INDICATION
     Route: 065
  2. TIOTROPIUM [Concomitant]
     Active Substance: TIOTROPIUM
     Indication: PRODUCT USED FOR UNKNOWN INDICATION
     Route: 048
  3. PLAVIX [Concomitant]
     Active Substance: CLOPIDOGREL BISULFATE
     Indication: PRODUCT USED FOR UNKNOWN INDICATION
     Route: 065
  4. SEEBRI BREEZHALER [Suspect]
     Active Substance: GLYCOPYRROLATE
     Indication: CHRONIC OBSTRUCTIVE PULMONARY DISEASE
     Dosage: 1 DF, QD (PER DAY)
     Route: 055
     Dates: start: 20140603
  5. DOXILEK [Concomitant]
     Indication: PRODUCT USED FOR UNKNOWN INDICATION
     Route: 065
  6. ONBREZ BREEZHALER [Suspect]
     Active Substance: INDACATEROL
     Indication: CHRONIC OBSTRUCTIVE PULMONARY DISEASE
     Dosage: 150 UG, QD
     Route: 055
     Dates: start: 20140206

REACTIONS (6)
  - Cerebrovascular accident [Recovered/Resolved]
  - Pulmonary embolism [Recovered/Resolved]
  - Circulatory collapse [Recovering/Resolving]
  - Benign prostatic hyperplasia [Recovered/Resolved]
  - Dizziness [Recovering/Resolving]
  - Urinary retention [Recovered/Resolved]

NARRATIVE: CASE EVENT DATE: 201406
